FAERS Safety Report 6727577-5 (Version None)
Quarter: 2010Q2

REPORT INFORMATION
  Report Type: 
  Country: None (occurrence: None)
  Receive Date: 20100517
  Receipt Date: 20100512
  Transmission Date: 20101027
  Serious: Yes (Death, Other)
  Sender: FDA-Public Use
  Company Number: PHHY2010US30918

PATIENT
  Age: 72 Year
  Sex: Male

DRUGS (2)
  1. TRILEPTAL [Suspect]
     Indication: EPILEPSY
     Dosage: UNK
  2. REMERON [Concomitant]
     Dosage: UNK

REACTIONS (2)
  - DECUBITUS ULCER [None]
  - MYOCARDIAL INFARCTION [None]
